FAERS Safety Report 7934653-8 (Version None)
Quarter: 2011Q4

REPORT INFORMATION
  Report Type: 
  Country: None (occurrence: None)
  Receive Date: 20111117
  Receipt Date: 20111109
  Transmission Date: 20120403
  Serious: Yes (Hospitalization)
  Sender: FDA-Public Use
  Company Number: 2011SP049672

PATIENT
  Sex: Female

DRUGS (2)
  1. DESOGESTREL (DESOGESTREL /00754001/) [Suspect]
     Indication: CONTRACEPTION
     Dosage: 30 MCG; PO ORAL
     Route: 048
     Dates: start: 20100201, end: 20110927
  2. ORTHO-CEPT [Suspect]
     Indication: PRODUCT USED FOR UNKNOWN INDICATION
     Dosage: ;QD;
     Dates: start: 20100201

REACTIONS (3)
  - PAIN IN EXTREMITY [None]
  - PULMONARY EMBOLISM [None]
  - SYNCOPE [None]
